FAERS Safety Report 10069887 (Version 2)
Quarter: 2014Q2

REPORT INFORMATION
  Report Type: Spontaneous
  Country: CA (occurrence: CA)
  Receive Date: 20140410
  Receipt Date: 20140608
  Transmission Date: 20141212
  Serious: Yes (Other)
  Sender: FDA-Public Use
  Company Number: CA-AMGEN-CANSP2014025083

PATIENT
  Age: 72 Year
  Sex: Female

DRUGS (5)
  1. ENBREL [Suspect]
     Indication: RHEUMATOID ARTHRITIS
     Dosage: 50 MG, QWK
     Route: 065
     Dates: start: 20140213
  2. HYDROXYCHLOROQUINE [Concomitant]
     Dosage: 200 MG, QD
  3. PREDNISONE [Concomitant]
     Dosage: 5 MG, UNK
  4. NIZATIDINE [Concomitant]
     Dosage: 60 MG, QD
  5. LISINOPRIL [Concomitant]
     Dosage: 20 MG, QD

REACTIONS (2)
  - Rectal haemorrhage [Not Recovered/Not Resolved]
  - Faeces discoloured [Not Recovered/Not Resolved]
